FAERS Safety Report 7527810-6 (Version None)
Quarter: 2011Q2

REPORT INFORMATION
  Report Type: 
  Country: None (occurrence: None)
  Receive Date: 20110607
  Receipt Date: 20110530
  Transmission Date: 20111010
  Serious: Yes (Other)
  Sender: FDA-Public Use
  Company Number: FR-AMGEN-FRASP2011028447

PATIENT
  Age: 43 Year
  Sex: Male

DRUGS (5)
  1. PROCORALAN [Concomitant]
     Dosage: UNK
  2. ENBREL [Suspect]
     Indication: PRODUCT USED FOR UNKNOWN INDICATION
     Dosage: 50 MG, UNK
     Dates: start: 20090101
  3. EZETIMIBE [Concomitant]
     Dosage: UNKNOWN
  4. PREVISCAN                          /00789001/ [Concomitant]
     Dosage: UNKNOWN
  5. RYTHMOL [Concomitant]
     Dosage: UNKNOWN

REACTIONS (2)
  - CHEST PAIN [None]
  - SURGERY [None]
